FAERS Safety Report 4519765-3 (Version None)
Quarter: 2004Q4

REPORT INFORMATION
  Report Type: 
  Country: None (occurrence: None)
  Receive Date: 20041203
  Receipt Date: 20041203
  Transmission Date: 20050328
  Serious: Yes (Disabling, Other)
  Sender: FDA-Public Use
  Company Number: None

PATIENT
  Age: 68 Year
  Sex: Female
  Weight: 77.1115 kg

DRUGS (2)
  1. PROTONIX [Suspect]
     Indication: HYPERTENSION
     Dates: start: 20010101, end: 20041231
  2. SPIRONOLACTONE/HYDROCHLOROTHIAZIDE [Suspect]
     Indication: GASTROOESOPHAGEAL REFLUX DISEASE
     Dates: start: 20000101, end: 20041231

REACTIONS (2)
  - BONE PAIN [None]
  - MYALGIA [None]
